FAERS Safety Report 7531931-1 (Version None)
Quarter: 2011Q2

REPORT INFORMATION
  Report Type: 
  Country: None (occurrence: None)
  Receive Date: 20110608
  Receipt Date: 20110603
  Transmission Date: 20111010
  Serious: Yes (Hospitalization, Other)
  Sender: FDA-Public Use
  Company Number: US-SANOFI-AVENTIS-2011SA035303

PATIENT
  Age: 63 Year
  Sex: Female
  Weight: 123 kg

DRUGS (14)
  1. ASPIRIN [Suspect]
     Route: 065
     Dates: start: 20090801
  2. NEXIUM [Concomitant]
  3. SYNTHROID [Concomitant]
  4. ZETIA [Concomitant]
  5. COUMADIN [Suspect]
     Route: 065
     Dates: start: 20071201, end: 20090801
  6. PLAVIX [Suspect]
     Indication: STENT PLACEMENT
     Route: 048
     Dates: start: 20071201, end: 20110517
  7. COUMADIN [Suspect]
     Route: 065
     Dates: start: 20070701, end: 20071201
  8. COUMADIN [Suspect]
     Route: 065
     Dates: start: 20070701, end: 20071201
  9. ASPIRIN [Suspect]
     Route: 065
     Dates: start: 20070701, end: 20090801
  10. NITROGLYCERIN [Concomitant]
  11. COUMADIN [Suspect]
     Route: 065
     Dates: start: 20071201, end: 20090801
  12. ASPIRIN [Suspect]
     Route: 065
     Dates: start: 20070701, end: 20090801
  13. ASPIRIN [Suspect]
     Route: 065
     Dates: start: 20090801
  14. LANTUS [Concomitant]

REACTIONS (13)
  - CELLULITIS [None]
  - ATRIAL FIBRILLATION [None]
  - GINGIVITIS [None]
  - RED BLOOD CELL COUNT DECREASED [None]
  - WEIGHT DECREASED [None]
  - PAIN IN EXTREMITY [None]
  - ALOPECIA [None]
  - CONTUSION [None]
  - HAEMOGLOBIN DECREASED [None]
  - HAEMORRHAGE [None]
  - PERIPHERAL COLDNESS [None]
  - MYOCARDIAL INFARCTION [None]
  - GASTROINTESTINAL HAEMORRHAGE [None]
